FAERS Safety Report 7770759-4 (Version None)
Quarter: 2011Q3

REPORT INFORMATION
  Report Type: 
  Country: None (occurrence: None)
  Receive Date: 20110922
  Receipt Date: 20110428
  Transmission Date: 20111222
  Serious: No
  Sender: FDA-Public Use
  Company Number: US-ASTRAZENECA-2011SE25783

PATIENT
  Age: 40 Year
  Sex: Female

DRUGS (4)
  1. SEROQUEL [Suspect]
     Indication: DEPRESSION
     Route: 048
     Dates: start: 20090101
  2. SEROQUEL [Suspect]
     Indication: INSOMNIA
     Route: 048
     Dates: start: 20090101
  3. SEROQUEL [Suspect]
     Indication: AGGRESSION
     Route: 048
     Dates: start: 20090101
  4. ZOLOFT [Concomitant]

REACTIONS (8)
  - SLUGGISHNESS [None]
  - THERAPEUTIC RESPONSE UNEXPECTED [None]
  - DEPRESSED MOOD [None]
  - WEIGHT INCREASED [None]
  - INCREASED APPETITE [None]
  - FATIGUE [None]
  - OFF LABEL USE [None]
  - HYPERPHAGIA [None]
